FAERS Safety Report 18739501 (Version 2)
Quarter: 2021Q1

REPORT INFORMATION
  Report Type: Report from Study
  Country: None (occurrence: US)
  Receive Date: 20210114
  Receipt Date: 20210121
  Transmission Date: 20210419
  Serious: Yes (Death)
  Sender: FDA-Public Use
  Company Number: US-ABBVIE-20K-163-3701734-00

PATIENT
  Age: 51 Year
  Sex: Male

DRUGS (1)
  1. HUMIRA [Suspect]
     Active Substance: ADALIMUMAB
     Indication: PSORIATIC ARTHROPATHY
     Dosage: CF
     Route: 058
     Dates: start: 201912, end: 202012

REACTIONS (5)
  - Unevaluable event [Unknown]
  - Drug ineffective [Unknown]
  - Suspected COVID-19 [Unknown]
  - Death [Fatal]
  - Influenza like illness [Unknown]

NARRATIVE: CASE EVENT DATE: 20201216
